FAERS Safety Report 4320491-4 (Version None)
Quarter: 2004Q1

REPORT INFORMATION
  Report Type: 
  Country: None (occurrence: None)
  Receive Date: 20040317
  Receipt Date: 20040303
  Transmission Date: 20041129
  Serious: Yes (Death)
  Sender: FDA-Public Use
  Company Number: R300992-PAP-USA

PATIENT
  Age: 83 Year
  Sex: Female

DRUGS (5)
  1. ACIPHEX [Suspect]
     Indication: GASTRIC DISORDER
     Dosage: 20 MG, ORAL
     Route: 048
  2. ZELNORM (SALBUTAMOL SULFATE) [Concomitant]
  3. DAMOCET (PROPACET) [Concomitant]
  4. DIDRONEL [Concomitant]
  5. MIACALCIN SPRAY (CALCITONIN, SALMON) [Concomitant]

REACTIONS (1)
  - DEATH [None]
